FAERS Safety Report 21240630 (Version 1)
Quarter: 2022Q3

REPORT INFORMATION
  Report Type: Spontaneous
  Country: US (occurrence: US)
  Receive Date: 20220823
  Receipt Date: 20220823
  Transmission Date: 20221027
  Serious: Yes (Other)
  Sender: FDA-Public Use
  Company Number: US-SA-SAC20220816001172

PATIENT
  Age: 18 Year
  Sex: Female

DRUGS (4)
  1. LEMTRADA [Suspect]
     Active Substance: ALEMTUZUMAB
     Indication: Multiple sclerosis
     Dates: start: 20150406
  2. COPAXONE [Suspect]
     Active Substance: GLATIRAMER ACETATE
     Indication: Multiple sclerosis
     Dosage: UNK
     Dates: start: 201705, end: 201808
  3. IMURAN [Concomitant]
     Active Substance: AZATHIOPRINE
     Dosage: 50 MG, QD
     Dates: start: 202005
  4. VIT D [VITAMIN D NOS] [Concomitant]

REACTIONS (7)
  - Drug-induced liver injury [Unknown]
  - Autoimmune hepatitis [Unknown]
  - Antinuclear antibody positive [Unknown]
  - Smooth muscle antibody positive [Unknown]
  - Liver function test increased [Unknown]
  - Condition aggravated [Unknown]
  - Alanine aminotransferase increased [Unknown]

NARRATIVE: CASE EVENT DATE: 20161201
